FAERS Safety Report 8465664-4 (Version None)
Quarter: 2012Q2

REPORT INFORMATION
  Report Type: 
  Country: None (occurrence: None)
  Receive Date: 20120620
  Receipt Date: 20120620
  Transmission Date: 20120825
  Serious: Yes (Other)
  Sender: FDA-Public Use
  Company Number: None

PATIENT
  Age: 66 Year
  Sex: Female
  Weight: 63.5036 kg

DRUGS (1)
  1. DICLOFENAC SODIUM [Suspect]
     Dosage: 1 TABLET DAILY ORAL
     Route: 048
     Dates: start: 20120525, end: 20120527

REACTIONS (4)
  - POLLAKIURIA [None]
  - ABDOMINAL DISCOMFORT [None]
  - SOMNOLENCE [None]
  - DIARRHOEA [None]
